FAERS Safety Report 8461268-8 (Version None)
Quarter: 2012Q2

REPORT INFORMATION
  Report Type: 
  Country: None (occurrence: None)
  Receive Date: 20120625
  Receipt Date: 20120618
  Transmission Date: 20120825
  Serious: No
  Sender: FDA-Public Use
  Company Number: US-PFIZER INC-2012147352

PATIENT
  Sex: Female

DRUGS (3)
  1. INLYTA [Suspect]
     Indication: RENAL CANCER
     Dosage: 5 MG, 2X/DAY X 7 DAYS
     Dates: start: 20120524
  2. INLYTA [Suspect]
     Dosage: 1 (5MG) + 5 (1MG) TWICE DAILY
  3. INLYTA [Suspect]
     Dosage: 1 (5MG) + 2 (1MG) TWICE DAILY FOR 10 DAYS

REACTIONS (3)
  - NEURALGIA [None]
  - MOUTH ULCERATION [None]
  - PALMAR-PLANTAR ERYTHRODYSAESTHESIA SYNDROME [None]
